FAERS Safety Report 8589693-5 (Version None)
Quarter: 2012Q3

REPORT INFORMATION
  Report Type: 
  Country: None (occurrence: None)
  Receive Date: 20120813
  Receipt Date: 20120801
  Transmission Date: 20120928
  Serious: No
  Sender: FDA-Public Use
  Company Number: US-ASTRAZENECA-2012SE54510

PATIENT
  Age: 59 Year
  Sex: Female
  Weight: 63.5 kg

DRUGS (3)
  1. PRINIVIL [Concomitant]
     Indication: HYPERTENSION
  2. PROTONIX [Concomitant]
  3. TOPROL-XL [Suspect]
     Indication: HYPERTENSION
     Dosage: ONE TABLET IN THE MORNING AND TWO TABLETS IN THE EVENING
     Route: 048

REACTIONS (3)
  - COUGH [None]
  - DRUG EFFECT DECREASED [None]
  - OFF LABEL USE [None]
